FAERS Safety Report 9048977 (Version 1)
Quarter: 2013Q1

REPORT INFORMATION
  Report Type: Spontaneous
  Country: GB (occurrence: None)
  Receive Date: 20130117
  Receipt Date: 20130117
  Transmission Date: 20140127
  Serious: Yes (Other)
  Sender: FDA-Public Use
  Company Number: DSA_61873_2013

PATIENT
  Age: 51 Year
  Sex: Female

DRUGS (1)
  1. ELONTRIL (ELONTRIL - BUPROPION HYDROCHLORIDE) (NOT SPECIFIED) [Suspect]
     Indication: DEPRESSION
     Route: 048
     Dates: start: 20120721, end: 20120810

REACTIONS (3)
  - Respiratory distress [None]
  - Blood pressure decreased [None]
  - Diarrhoea [None]
